FAERS Safety Report 15679577 (Version 1)
Quarter: 2018Q4

REPORT INFORMATION
  Report Type: Report from Study
  Country: IT (occurrence: IT)
  Receive Date: 20181203
  Receipt Date: 20181203
  Transmission Date: 20190205
  Serious: Yes (Hospitalization)
  Sender: FDA-Public Use
  Company Number: IT-ROCHE-2223382

PATIENT
  Age: 33 Year
  Sex: Male

DRUGS (2)
  1. COCAINE [Concomitant]
     Active Substance: COCAINE
  2. RIVOTRIL [Suspect]
     Active Substance: CLONAZEPAM
     Indication: PRODUCT USED FOR UNKNOWN INDICATION
     Route: 048
     Dates: start: 20180228, end: 20180228

REACTIONS (3)
  - Anxiety [Recovering/Resolving]
  - Vomiting [Recovering/Resolving]
  - Suicidal ideation [Recovering/Resolving]

NARRATIVE: CASE EVENT DATE: 20180228
